FAERS Safety Report 6421505-8 (Version None)
Quarter: 2009Q4

REPORT INFORMATION
  Report Type: 
  Country: None (occurrence: None)
  Receive Date: 20091030
  Receipt Date: 20091018
  Transmission Date: 20100525
  Serious: Yes (Death)
  Sender: FDA-Public Use
  Company Number: IR-GENENTECH-292871

PATIENT
  Age: 29 Year
  Sex: Female

DRUGS (1)
  1. MABTHERA [Suspect]
     Indication: SYSTEMIC LUPUS ERYTHEMATOSUS
     Dosage: UNK
     Route: 042
     Dates: start: 20090929, end: 20090929

REACTIONS (2)
  - DEATH [None]
  - PULMONARY ALVEOLAR HAEMORRHAGE [None]
